FAERS Safety Report 17212008 (Version 1)
Quarter: 2019Q4

REPORT INFORMATION
  Report Type: Spontaneous
  Country: US (occurrence: US)
  Receive Date: 20191230
  Receipt Date: 20191230
  Transmission Date: 20200122
  Serious: No
  Sender: FDA-Public Use
  Company Number: US-ALLERGAN-1942934US

PATIENT
  Sex: Male

DRUGS (2)
  1. BYSTOLIC [Suspect]
     Active Substance: NEBIVOLOL HYDROCHLORIDE
     Indication: HYPERTENSION
     Dosage: 5 MG, UNKNOWN
  2. HETLIOZ [Suspect]
     Active Substance: TASIMELTEON
     Indication: NON-24-HOUR SLEEP-WAKE DISORDER
     Dosage: 20 MG, QHS
     Dates: start: 20190719

REACTIONS (6)
  - Blood pressure increased [Unknown]
  - Irregular sleep phase [Unknown]
  - Hunger [Unknown]
  - Disinhibition [Recovered/Resolved]
  - Agitation [Recovered/Resolved]
  - Irritability [Unknown]
